FAERS Safety Report 4890805-5 (Version None)
Quarter: 2006Q1

REPORT INFORMATION
  Report Type: 
  Country: None (occurrence: None)
  Receive Date: 20060123
  Receipt Date: 29960110
  Transmission Date: 20060701
  Serious: Yes (Death, Other)
  Sender: FDA-Public Use
  Company Number: 2006008086

PATIENT
  Age: 74 Year
  Sex: Male

DRUGS (16)
  1. NEURONTIN [Suspect]
     Indication: ILL-DEFINED DISORDER
     Dosage: 300 MG (100 MG, 3 IN 1D), ORAL
     Route: 048
     Dates: start: 20040614
  2. ACTOS [Concomitant]
  3. KLOR-CON [Concomitant]
  4. GLIPIZIDE [Concomitant]
  5. MEGESTROL ACETATE [Concomitant]
  6. ALLOPURINOL [Concomitant]
  7. PREDNISONE [Concomitant]
  8. DIAMOX [Concomitant]
  9. ZOLOFT [Concomitant]
  10. DIGOXIN [Concomitant]
  11. DILTIAZEM [Concomitant]
  12. HUMULIN N [Concomitant]
  13. FUROSEMIDE [Concomitant]
  14. WARFARIN SODIUM [Concomitant]
  15. COREG [Concomitant]
  16. PREVACID [Concomitant]

REACTIONS (1)
  - DEATH [None]
